FAERS Safety Report 12384988 (Version 1)
Quarter: 2016Q2

REPORT INFORMATION
  Report Type: Spontaneous
  Country: RU (occurrence: RU)
  Receive Date: 20160519
  Receipt Date: 20160519
  Transmission Date: 20160815
  Serious: Yes (Hospitalization, Other)
  Sender: FDA-Public Use
  Company Number: RU-BAYER-2016-095147

PATIENT
  Age: 44 Year
  Sex: Female

DRUGS (1)
  1. MIRENA [Suspect]
     Active Substance: LEVONORGESTREL
     Dosage: 20 MCG/24HR, CONT
     Route: 015

REACTIONS (8)
  - Cervical dysplasia [None]
  - Uterine leiomyoma [None]
  - Uterine cervical squamous metaplasia [None]
  - Abdominal discomfort [None]
  - Menorrhagia [None]
  - Cervix carcinoma stage 0 [None]
  - Ovarian cancer stage I [None]
  - Cervix disorder [None]
